FAERS Safety Report 7635690-3 (Version None)
Quarter: 2011Q3

REPORT INFORMATION
  Report Type: 
  Country: None (occurrence: None)
  Receive Date: 20110726
  Receipt Date: 20110720
  Transmission Date: 20111222
  Serious: Yes (Other)
  Sender: FDA-Public Use
  Company Number: TR-BAYER-2011-046024

PATIENT
  Age: 44 Year
  Sex: Female
  Weight: 85 kg

DRUGS (3)
  1. ASPIRIN [Concomitant]
  2. ANTIHYPERTENSIVES [Concomitant]
  3. MIRENA [Suspect]
     Dosage: UNK

REACTIONS (1)
  - CORONARY ARTERY EMBOLISM [None]
